FAERS Safety Report 13998019 (Version 2)
Quarter: 2017Q4

REPORT INFORMATION
  Report Type: Report from Study
  Country: BE (occurrence: BE)
  Receive Date: 20170921
  Receipt Date: 20171228
  Transmission Date: 20180321
  Serious: Yes (Hospitalization)
  Sender: FDA-Public Use
  Company Number: BE-PFIZER INC-2017405983

PATIENT
  Age: 45 Year
  Sex: Female
  Weight: 84 kg

DRUGS (10)
  1. MEDROL [Suspect]
     Active Substance: METHYLPREDNISOLONE
     Indication: COLITIS
     Dosage: 32 MG, 1X/DAY
     Route: 048
     Dates: start: 20170915
  2. METFORMINE [Concomitant]
     Active Substance: METFORMIN HYDROCHLORIDE
     Indication: DIABETES MELLITUS
     Dosage: 1000 MG, 2X/DAY
     Route: 048
     Dates: start: 2012
  3. AMLODIPINE [Concomitant]
     Active Substance: AMLODIPINE BESYLATE
     Indication: HYPERTENSION
     Dosage: 10 MG, 1X/DAY
     Route: 048
     Dates: start: 20170812
  4. NYSTATINE [Concomitant]
     Indication: MUCOSAL INFLAMMATION
     Dosage: UNK UNK, 3X/DAY
     Route: 048
     Dates: start: 20170828
  5. AUGMENTINE /00756801/ [Concomitant]
     Indication: IMPAIRED HEALING
     Dosage: 875 MG, 3X/DAY
     Route: 048
     Dates: start: 20170912
  6. PANTOPRAZOL [Concomitant]
     Active Substance: PANTOPRAZOLE SODIUM
     Indication: GASTRIC PH DECREASED
     Dosage: 40 MG, 1X/DAY
     Route: 048
     Dates: start: 20170816
  7. AXITINIB [Suspect]
     Active Substance: AXITINIB
     Indication: RENAL CELL CARCINOMA
     Dosage: 50 MG, 2X/DAY (TWICE DAILY CONTINUOUS)
     Route: 048
     Dates: start: 20170807, end: 20170912
  8. MSB0010718C [Suspect]
     Active Substance: AVELUMAB
     Indication: RENAL CELL CARCINOMA
     Dosage: 900 MG, CYCLIC (EVERY 2 WEEKS)
     Route: 042
     Dates: start: 20170807, end: 20170904
  9. GLICAZIDA [Concomitant]
     Active Substance: GLICLAZIDE
     Indication: DIABETES MELLITUS
     Dosage: 80 MG, 1X/DAY
     Route: 048
     Dates: start: 2012
  10. TRAMADOL. [Concomitant]
     Active Substance: TRAMADOL
     Indication: PAIN
     Dosage: 50 MG, 1X/DAY
     Route: 048
     Dates: start: 20170816

REACTIONS (1)
  - Hyperglycaemia [Recovered/Resolved with Sequelae]

NARRATIVE: CASE EVENT DATE: 20170918
